FAERS Safety Report 5072030-0 (Version None)
Quarter: 2006Q3

REPORT INFORMATION
  Report Type: 
  Country: None (occurrence: None)
  Receive Date: 20060807
  Receipt Date: 20060728
  Transmission Date: 20061208
  Serious: Yes (Death)
  Sender: FDA-Public Use
  Company Number: JP-NOVOPROD-255652

PATIENT
  Age: 53 Year
  Sex: Male

DRUGS (2)
  1. NOVOSEVEN [Suspect]
     Indication: HAEMORRHAGE
     Dosage: 4.8 MG, TID
     Route: 042
     Dates: start: 20060714, end: 20060714
  2. NOVOSEVEN [Suspect]
     Dosage: 4.8 MG, SINGLE
     Route: 042
     Dates: start: 20060726, end: 20060726

REACTIONS (1)
  - NEOPLASM MALIGNANT [None]
